FAERS Safety Report 8953975 (Version 4)
Quarter: 2013Q1

REPORT INFORMATION
  Report Type: Spontaneous
  Country: US (occurrence: US)
  Receive Date: 20121206
  Receipt Date: 20130118
  Transmission Date: 20140127
  Serious: Yes (Hospitalization)
  Sender: FDA-Public Use
  Company Number: US-009507513-1211USA012394

PATIENT
  Age: 56 Year
  Sex: Female
  Weight: 69.84 kg

DRUGS (11)
  1. PEGINTRON [Suspect]
     Dosage: 96 MICROGRAM, QW
     Route: 058
  2. RIBAVIRIN [Suspect]
     Dosage: 200 MG, UNK
     Route: 048
  3. KLONOPIN [Concomitant]
     Dosage: 2 MG, UNK
  4. SEROQUEL [Concomitant]
     Dosage: 100 MG, UNK
  5. METANX [Concomitant]
     Route: 048
  6. GABAPENTIN [Concomitant]
  7. DOXEPIN HYDROCHLORIDE [Concomitant]
  8. REMERON SOLTAB [Concomitant]
  9. ARTHRITEN [Concomitant]
  10. VITAMINS (UNSPECIFIED) [Concomitant]
  11. KAOPECTATE (ATTAPULGITE, ACTIVATED) [Suspect]

REACTIONS (18)
  - Dehydration [Unknown]
  - Rash pruritic [Unknown]
  - Lip blister [Unknown]
  - Tongue disorder [Unknown]
  - Dysgeusia [Unknown]
  - Oral mucosal blistering [Unknown]
  - Glossitis [Unknown]
  - Blister [Unknown]
  - Erythema [Unknown]
  - Haemoglobin increased [Unknown]
  - Strawberry tongue [Unknown]
  - Platelet count decreased [Unknown]
  - Insomnia [Unknown]
  - Pyrexia [Unknown]
  - Hot flush [Unknown]
  - Diarrhoea [Unknown]
  - Fatigue [Unknown]
  - Renal failure acute [None]
